FAERS Safety Report 9280175 (Version 2)
Quarter: 2013Q2

REPORT INFORMATION
  Report Type: Spontaneous
  Country: US (occurrence: US)
  Receive Date: 20130509
  Receipt Date: 20130530
  Transmission Date: 20140414
  Serious: Yes (Death, Hospitalization, Other)
  Sender: FDA-Public Use
  Company Number: US-TEVA-403490USA

PATIENT
  Age: 34 Year
  Sex: Female
  Weight: 55.84 kg

DRUGS (2)
  1. FENTORA [Suspect]
     Indication: ABDOMINAL PAIN
     Dosage: 800 MICROGRAM DAILY;
     Route: 002
     Dates: start: 20120507
  2. FENTANYL DURAGESIC PATCH [Suspect]
     Indication: ABDOMINAL PAIN
     Dosage: Q 72 HOURS

REACTIONS (4)
  - Post procedural complication [Fatal]
  - Gastric ulcer [Unknown]
  - Fistula [Unknown]
  - Off label use [Unknown]
